FAERS Safety Report 7518469-2 (Version None)
Quarter: 2011Q2

REPORT INFORMATION
  Report Type: 
  Country: None (occurrence: None)
  Receive Date: 20110601
  Receipt Date: 20110601
  Transmission Date: 20111010
  Serious: No
  Sender: FDA-Public Use
  Company Number: None

PATIENT
  Age: 56 Year
  Sex: Male
  Weight: 97.5234 kg

DRUGS (1)
  1. FENOFIBRATE [Suspect]
     Indication: BLOOD CHOLESTEROL INCREASED
     Dosage: 134 MG 1 CAPSULE DAILY PO
     Route: 048
     Dates: start: 20110510, end: 20110525

REACTIONS (3)
  - FATIGUE [None]
  - CHEST PAIN [None]
  - CONTUSION [None]
